FAERS Safety Report 7101242-7 (Version None)
Quarter: 2010Q4

REPORT INFORMATION
  Report Type: 
  Country: None (occurrence: None)
  Receive Date: 20101115
  Receipt Date: 20101102
  Transmission Date: 20110411
  Serious: Yes (Hospitalization)
  Sender: FDA-Public Use
  Company Number: US-JNJFOC-20101102327

PATIENT
  Sex: Female
  Weight: 84.37 kg

DRUGS (13)
  1. FENTANYL [Suspect]
     Indication: RADICULAR PAIN
     Route: 062
  2. SANDOZ FENTANYL TRANSDERMAL SYSTEM [Suspect]
     Route: 062
  3. FENTANYL [Suspect]
     Route: 062
  4. FENTANYL [Suspect]
     Indication: RADICULAR PAIN
     Route: 062
  5. ALCOHOL [Suspect]
     Indication: ILL-DEFINED DISORDER
     Route: 065
  6. FOLIC ACID [Concomitant]
     Indication: MEDICAL DIET
     Route: 048
  7. ZOLOFT [Concomitant]
     Indication: ANXIETY
     Dosage: 1 TABLET AT NIGHT
     Route: 065
  8. ZOLOFT [Concomitant]
     Dosage: 100 MG TABLET/1/2 TABLET IN MORNING
     Route: 065
  9. LEVOXYL [Concomitant]
     Indication: HYPOTHYROIDISM
     Route: 048
  10. OMEPRAZOLE [Concomitant]
     Indication: GASTRIC DISORDER
     Route: 048
  11. SOMA [Concomitant]
     Indication: MUSCLE RELAXANT THERAPY
     Dosage: 350 MG/AS NEEDED
     Route: 048
  12. KLONOPIN [Concomitant]
     Indication: ANXIETY
     Route: 048
  13. KLONOPIN [Concomitant]
     Indication: CONVULSION
     Route: 048

REACTIONS (7)
  - ALCOHOL USE [None]
  - DELAYED RECOVERY FROM ANAESTHESIA [None]
  - HEPATIC ENZYME INCREASED [None]
  - HOT FLUSH [None]
  - HYPERHIDROSIS [None]
  - INTERVERTEBRAL DISC PROTRUSION [None]
  - WEIGHT DECREASED [None]
